FAERS Safety Report 23194881 (Version 2)
Quarter: 2024Q1

REPORT INFORMATION
  Report Type: Spontaneous
  Country: RU (occurrence: RU)
  Receive Date: 20231117
  Receipt Date: 20240205
  Transmission Date: 20240410
  Serious: Yes (Hospitalization, Other)
  Sender: FDA-Public Use
  Company Number: RU-SERVIER-S23011174

PATIENT

DRUGS (3)
  1. ONCASPAR [Suspect]
     Active Substance: PEGASPARGASE
     Indication: Acute lymphocytic leukaemia
     Dosage: UNK
     Route: 042
     Dates: end: 202309
  2. METHOTREXATE [Suspect]
     Active Substance: METHOTREXATE
     Indication: Acute lymphocytic leukaemia
     Dosage: UNK
     Route: 065
  3. MERCAPTOPURINE [Suspect]
     Active Substance: MERCAPTOPURINE
     Indication: Acute lymphocytic leukaemia
     Dosage: UNK
     Route: 065

REACTIONS (2)
  - Pancreatitis necrotising [Recovering/Resolving]
  - Pancreatic cyst [Recovering/Resolving]

NARRATIVE: CASE EVENT DATE: 20230101
